FAERS Safety Report 9352392 (Version 2)
Quarter: 2013Q3

REPORT INFORMATION
  Report Type: Spontaneous
  Country: IT (occurrence: IT)
  Receive Date: 20130617
  Receipt Date: 20130904
  Transmission Date: 20140515
  Serious: Yes (Hospitalization)
  Sender: FDA-Public Use
  Company Number: IT-ELI_LILLY_AND_COMPANY-IT201306002921

PATIENT
  Age: 64 Year
  Sex: Male

DRUGS (8)
  1. HUMALOG LISPRO [Suspect]
     Indication: DIABETES MELLITUS
     Dosage: 4 IU, EACH MORNING
     Dates: start: 20130101, end: 20130508
  2. HUMALOG LISPRO [Suspect]
     Dosage: 9 IU, BID
     Dates: start: 20130101, end: 20130508
  3. HUMALOG LISPRO - NPL [Suspect]
     Indication: DIABETES MELLITUS
     Dosage: 15 IU, QD
     Dates: start: 20130101, end: 20130508
  4. PREGABALIN [Concomitant]
     Route: 048
  5. FELODIPINE [Concomitant]
     Route: 048
  6. CARDIOASPIRIN [Concomitant]
     Dosage: 100 MEQ, UNK
     Route: 048
  7. INITISS PLUS [Concomitant]
     Dosage: 1 DF, UNK
     Route: 048
  8. CONCOR [Concomitant]
     Dosage: 10 MG, UNK
     Route: 048

REACTIONS (1)
  - Hypoglycaemia [Recovered/Resolved]
